FAERS Safety Report 19854646 (Version 1)
Quarter: 2021Q3

REPORT INFORMATION
  Report Type: Spontaneous
  Country: US (occurrence: US)
  Receive Date: 20210920
  Receipt Date: 20210920
  Transmission Date: 20211014
  Serious: No
  Sender: FDA-Public Use
  Company Number: US-SA-2021SA308337

PATIENT
  Age: 62 Year
  Sex: Male

DRUGS (2)
  1. DUPIXENT [Suspect]
     Active Substance: DUPILUMAB
     Indication: DERMATITIS ATOPIC
     Dosage: 300 MG, QOW
  2. CLOBETASOL [Concomitant]
     Active Substance: CLOBETASOL
     Indication: DERMATITIS ATOPIC
     Dosage: UNK

REACTIONS (9)
  - Skin swelling [Recovering/Resolving]
  - Arthropod bite [Recovering/Resolving]
  - Tenderness [Recovering/Resolving]
  - Feeling hot [Recovered/Resolved]
  - Fatigue [Unknown]
  - Arthropod sting [Unknown]
  - Impaired healing [Unknown]
  - Pruritus [Recovering/Resolving]
  - Somnolence [Unknown]
